FAERS Safety Report 9592740 (Version 1)
Quarter: 2013Q4

REPORT INFORMATION
  Report Type: Spontaneous
  Country: US (occurrence: None)
  Receive Date: 20131003
  Receipt Date: 20131003
  Transmission Date: 20140711
  Serious: No
  Sender: FDA-Public Use
  Company Number: None

PATIENT
  Sex: Female

DRUGS (1)
  1. HUMIRA, 40 MG, ABBVIE [Suspect]
     Route: 058
     Dates: start: 20130808

REACTIONS (4)
  - Headache [None]
  - Nausea [None]
  - Diarrhoea [None]
  - Burning sensation [None]
